FAERS Safety Report 8811653 (Version 1)
Quarter: 2012Q4

REPORT INFORMATION
  Report Type: 
  Country: US (occurrence: US)
  Receive Date: 20120927
  Receipt Date: 20120927
  Transmission Date: 20130627
  Serious: No
  Sender: FDA-Public Use
  Company Number: US-MUTUAL PHARMACEUTICAL COMPANY, INC.-BCTM20110046

PATIENT
  Sex: Female

DRUGS (11)
  1. BACTRIM [Suspect]
     Indication: STAPHYLOCOCCAL INFECTION
     Route: 065
     Dates: start: 201006
  2. HUMIRA 40 MG/0.8 ML PEN [Concomitant]
     Indication: PLAQUE PSORIASIS
     Route: 058
     Dates: start: 200802
  3. HUMIRA 40 MG/0.8 ML PEN [Concomitant]
     Indication: PSORIATIC ARTHROPATHY
  4. FLUOXETINE HYDROCHLORIDE [Concomitant]
     Indication: DRUG USE FOR UNKNOWN INDICATION
     Route: 065
  5. NADOLOL [Concomitant]
     Indication: HEADACHE
     Route: 065
  6. NADOLOL [Concomitant]
     Indication: MIGRAINE
  7. DIPHENHYDRAMINE HYDROCHLORIDE [Concomitant]
     Indication: ITCHING
     Route: 065
  8. IBUPROFEN [Concomitant]
     Indication: PAIN
     Route: 065
  9. IBUPROFEN [Concomitant]
     Indication: SWELLING
  10. PROBIOTIC CULTUREL [Concomitant]
     Indication: COLITIS
     Route: 065
  11. SUMATRIPTAN [Concomitant]
     Indication: MIGRAINE
     Route: 065

REACTIONS (2)
  - Swelling face [Unknown]
  - Urticaria [Unknown]
